FAERS Safety Report 15714090 (Version 1)
Quarter: 2018Q4

REPORT INFORMATION
  Report Type: Spontaneous
  Country: US (occurrence: US)
  Receive Date: 20181129
  Receipt Date: 20181129
  Transmission Date: 20190205
  Serious: No
  Sender: FDA-Public Use
  Company Number: None

PATIENT

DRUGS (1)
  1. HEPARIN 5,000 UNIT/1,000ML 0.9% NACL BAG [Suspect]
     Active Substance: HEPARIN SODIUM
     Dosage: ?          OTHER STRENGTH:5,000 UNIT/1,000ML;?

REACTIONS (1)
  - Product label issue [None]
